FAERS Safety Report 6415105-3 (Version None)
Quarter: 2009Q4

REPORT INFORMATION
  Report Type: 
  Country: None (occurrence: None)
  Receive Date: 20091027
  Receipt Date: 20091023
  Transmission Date: 20100525
  Serious: Yes (Other)
  Sender: FDA-Public Use
  Company Number: US-ASTRAZENECA-2007UW05941

PATIENT
  Age: 433 Month
  Sex: Female
  Weight: 97.5 kg

DRUGS (9)
  1. SEROQUEL [Suspect]
     Indication: SLEEP DISORDER
     Dosage: 75-300 MG
     Route: 048
     Dates: start: 20030301, end: 20051202
  2. SEROQUEL [Suspect]
     Dosage: 100 MG - 600 MG
     Route: 048
     Dates: start: 20030602, end: 20051212
  3. CLONOPIN [Concomitant]
  4. WELLBUTRIN/ WELLBUTRIN XL [Concomitant]
  5. WELLBUTRIN/ WELLBUTRIN XL [Concomitant]
     Dates: start: 20030602
  6. REMERON [Concomitant]
  7. PAXIL CR [Concomitant]
     Dosage: 25 MG - 50 MG
     Dates: start: 20030602
  8. SYNTHROID [Concomitant]
     Dates: start: 20030602
  9. AMBIEN [Concomitant]
     Dates: start: 20030602

REACTIONS (2)
  - HYSTERECTOMY [None]
  - PANCREATITIS [None]
